FAERS Safety Report 7561202-9 (Version None)
Quarter: 2011Q2

REPORT INFORMATION
  Report Type: 
  Country: None (occurrence: None)
  Receive Date: 20110621
  Receipt Date: 20100430
  Transmission Date: 20111010
  Serious: No
  Sender: FDA-Public Use
  Company Number: US-ASTRAZENECA-2010SE19745

PATIENT
  Age: 24293 Day
  Sex: Female
  Weight: 147.4 kg

DRUGS (1)
  1. PULMICORT FLEXHALER [Suspect]
     Dosage: 180 MCG
     Route: 055

REACTIONS (3)
  - TREATMENT NONCOMPLIANCE [None]
  - MUSCULAR WEAKNESS [None]
  - SWELLING FACE [None]
